FAERS Safety Report 20353174 (Version 1)
Quarter: 2022Q1

REPORT INFORMATION
  Report Type: Spontaneous
  Country: US (occurrence: US)
  Receive Date: 20220119
  Receipt Date: 20220119
  Transmission Date: 20220423
  Serious: No
  Sender: FDA-Public Use
  Company Number: US-LUNDBECK-DKLU3042999

PATIENT

DRUGS (2)
  1. DROXIDOPA [Suspect]
     Active Substance: DROXIDOPA
     Indication: Orthostatic hypotension
     Route: 065
  2. DROXIDOPA [Suspect]
     Active Substance: DROXIDOPA
     Dosage: TITRATED
     Route: 065

REACTIONS (1)
  - Supine hypertension [Unknown]
